FAERS Safety Report 24822097 (Version 1)
Quarter: 2025Q1

REPORT INFORMATION
  Report Type: Spontaneous
  Country: US (occurrence: US)
  Receive Date: 20250108
  Receipt Date: 20250108
  Transmission Date: 20250409
  Serious: Yes (Other)
  Sender: NOVO NORDISK
  Company Number: US-NOVOPROD-775656

PATIENT
  Age: 37 Year
  Sex: Male

DRUGS (1)
  1. TRESIBA [Suspect]
     Active Substance: INSULIN DEGLUDEC
     Indication: Type 2 diabetes mellitus
     Dosage: 30 IU, QD
     Route: 058
     Dates: start: 2016

REACTIONS (5)
  - Foot operation [Unknown]
  - Toe amputation [Unknown]
  - Osteomyelitis [Unknown]
  - Blood glucose increased [Unknown]
  - Blood glucose decreased [Unknown]
